FAERS Safety Report 15616220 (Version 1)
Quarter: 2018Q4

REPORT INFORMATION
  Report Type: Spontaneous
  Country: US (occurrence: US)
  Receive Date: 20181108
  Receipt Date: 20181108
  Transmission Date: 20190205
  Serious: No
  Sender: FDA-Public Use
  Company Number: None

PATIENT
  Age: 19 Year
  Sex: Female

DRUGS (1)
  1. METHOTREXATE INJ 50MG/2ML [Suspect]
     Active Substance: METHOTREXATE SODIUM
     Dates: start: 201810

REACTIONS (3)
  - Hallucination [None]
  - Dysphagia [None]
  - Headache [None]

NARRATIVE: CASE EVENT DATE: 20181107
